FAERS Safety Report 9992725 (Version 2)
Quarter: 2014Q2

REPORT INFORMATION
  Report Type: Spontaneous
  Country: US (occurrence: US)
  Receive Date: 20140310
  Receipt Date: 20140411
  Transmission Date: 20141212
  Serious: Yes (Other)
  Sender: FDA-Public Use
  Company Number: US-PFIZER INC-2014068559

PATIENT
  Sex: Female

DRUGS (5)
  1. LYRICA [Suspect]
     Indication: FIBROMYALGIA
     Dosage: UNK
  2. LYRICA [Suspect]
     Indication: NEUROPATHY PERIPHERAL
  3. NORTRIPTYLINE [Concomitant]
     Dosage: UNK
  4. AMITRIPTYLINE [Concomitant]
     Dosage: UNK
  5. TRAMADOL [Concomitant]
     Indication: FIBROMYALGIA
     Dosage: UNK

REACTIONS (6)
  - Abasia [Unknown]
  - Drug ineffective [Unknown]
  - Fall [Unknown]
  - Balance disorder [Unknown]
  - Pain [Unknown]
  - Hypoaesthesia [Unknown]
